FAERS Safety Report 7225092-6 (Version None)
Quarter: 2011Q1

REPORT INFORMATION
  Report Type: 
  Country: None (occurrence: None)
  Receive Date: 20110113
  Receipt Date: 20110106
  Transmission Date: 20110831
  Serious: Yes (Hospitalization)
  Sender: FDA-Public Use
  Company Number: DE-PFIZER INC-2009292244

PATIENT
  Age: 38 Year
  Sex: Male
  Weight: 90 kg

DRUGS (9)
  1. FLUOXETINE [Suspect]
  2. PROMETHAZINE [Suspect]
  3. TIMONIL [Suspect]
  4. AMLODIPINE BESYLATE [Suspect]
  5. DILZEM [Suspect]
  6. LYRICA [Suspect]
  7. TRANXILIUM [Suspect]
  8. TAVOR [Suspect]
  9. CO-DIOVANE [Suspect]

REACTIONS (3)
  - SOMNOLENCE [None]
  - GASTROINTESTINAL SOUNDS ABNORMAL [None]
  - SUICIDE ATTEMPT [None]
